FAERS Safety Report 24554870 (Version 1)
Quarter: 2024Q4

REPORT INFORMATION
  Report Type: Spontaneous
  Country: US (occurrence: US)
  Receive Date: 20241028
  Receipt Date: 20241028
  Transmission Date: 20250115
  Serious: Yes (Other)
  Sender: AMNEAL
  Company Number: US-AMNEAL PHARMACEUTICALS-2024-AMRX-03831

PATIENT
  Sex: Male

DRUGS (3)
  1. ABIRATERONE ACETATE [Suspect]
     Active Substance: ABIRATERONE ACETATE
     Indication: Product used for unknown indication
     Dosage: UNK
     Route: 065
  2. RELUGOLIX [Suspect]
     Active Substance: RELUGOLIX
     Indication: Prostate cancer
     Dosage: 360 MG
     Route: 048
  3. RELUGOLIX [Suspect]
     Active Substance: RELUGOLIX
     Dosage: 120 MG, DAILY
     Route: 048
     Dates: start: 20240719

REACTIONS (4)
  - Renal impairment [Unknown]
  - Adverse drug reaction [Unknown]
  - Fatigue [Unknown]
  - Hot flush [Recovered/Resolved]
